FAERS Safety Report 9145444 (Version 3)
Quarter: 2013Q2

REPORT INFORMATION
  Report Type: Spontaneous
  Country: US (occurrence: US)
  Receive Date: 20130307
  Receipt Date: 20130508
  Transmission Date: 20140414
  Serious: No
  Sender: FDA-Public Use
  Company Number: US-009507513-1303USA001444

PATIENT
  Age: 59 Year
  Sex: Female
  Weight: 83.9 kg

DRUGS (9)
  1. PEGINTRON [Suspect]
     Dosage: REDIPEN, 150 MICROGRAM/0.5 ML, QW
     Route: 058
  2. REBETOL [Suspect]
     Dosage: UNK
  3. VICTRELIS [Suspect]
     Dosage: 800 MG, TID
     Route: 048
  4. SYNTHROID [Concomitant]
  5. DOXAZOSIN MESYLATE [Concomitant]
  6. ESTRADIOL [Concomitant]
     Route: 048
  7. CELEXA [Concomitant]
  8. LOSARTAN POTASSIUM [Concomitant]
     Route: 048
  9. IRON (UNSPECIFIED) [Concomitant]
     Route: 048

REACTIONS (8)
  - Vomiting [Not Recovered/Not Resolved]
  - Headache [Not Recovered/Not Resolved]
  - Fatigue [Not Recovered/Not Resolved]
  - Nausea [Not Recovered/Not Resolved]
  - Anaemia [Unknown]
  - Pain [Unknown]
  - Influenza like illness [Unknown]
  - Dysgeusia [Unknown]
